FAERS Safety Report 4833370-0 (Version None)
Quarter: 2005Q4

REPORT INFORMATION
  Report Type: 
  Country: None (occurrence: None)
  Receive Date: 20051117
  Receipt Date: 20051107
  Transmission Date: 20060501
  Serious: Yes (Hospitalization)
  Sender: FDA-Public Use
  Company Number: TUK2005A00072

PATIENT
  Age: 55 Year
  Sex: Male

DRUGS (10)
  1. ACTOS [Suspect]
     Dosage: 15 MG
  2. ISOSORBIDE MONONITRATE [Suspect]
     Dosage: 60 MG
  3. ASPIRIN [Suspect]
     Dosage: 75 MG
  4. ATORVASTATIN (ATORVASTATIN) [Suspect]
  5. BENDROFLUMETHIAZIDE (BENDROFLUMETHIAZIDE) [Concomitant]
  6. RAMIPRIL [Concomitant]
  7. AMLODIPINE [Concomitant]
  8. METFORMIN HCL [Concomitant]
  9. METHYLDOPA [Concomitant]
  10. HYDRALAZINE HYDROCHLORIDE (HYDRALAZINE HYDROCHLORIDE) [Concomitant]

REACTIONS (12)
  - ATRIAL FIBRILLATION [None]
  - CEREBRAL HAEMATOMA [None]
  - CEREBRAL INFARCTION [None]
  - DYSARTHRIA [None]
  - GLUCOSE URINE PRESENT [None]
  - HAEMORRHAGIC STROKE [None]
  - HEMIANOPIA HOMONYMOUS [None]
  - HYPERTENSION [None]
  - ISCHAEMIC STROKE [None]
  - PROTEINURIA [None]
  - SOMNOLENCE [None]
  - VENTRICULAR HYPERTROPHY [None]
